FAERS Safety Report 7685597-0 (Version None)
Quarter: 2011Q3

REPORT INFORMATION
  Report Type: 
  Country: None (occurrence: None)
  Receive Date: 20110816
  Receipt Date: 20110808
  Transmission Date: 20111222
  Serious: Yes (Other)
  Sender: FDA-Public Use
  Company Number: FR-PFIZER INC-2011151381

PATIENT
  Age: 82 Year
  Sex: Female

DRUGS (1)
  1. CORDARONE [Suspect]
     Indication: PRODUCT USED FOR UNKNOWN INDICATION
     Dosage: 200 MG, 1X/DAY
     Route: 048
     Dates: start: 20090101, end: 20110625

REACTIONS (5)
  - OPTIC NERVE INJURY [None]
  - EYE OEDEMA [None]
  - DERMATITIS ALLERGIC [None]
  - VISUAL IMPAIRMENT [None]
  - FLUSHING [None]
